FAERS Safety Report 19230639 (Version 1)
Quarter: 2021Q2

REPORT INFORMATION
  Report Type: Spontaneous
  Country: US (occurrence: US)
  Receive Date: 20210507
  Receipt Date: 20210507
  Transmission Date: 20210717
  Serious: No
  Sender: FDA-Public Use
  Company Number: None

PATIENT
  Age: 70 Year
  Sex: Female
  Weight: 54.43 kg

DRUGS (1)
  1. TEMOZOLOMIDE 100 MG CPAS 5S, 100MG [Suspect]
     Active Substance: TEMOZOLOMIDE
     Indication: BRAIN NEOPLASM MALIGNANT
     Dosage: ?          OTHER DOSE:2 CAPS; FOR DAYS AS DIRECTED?
     Route: 048
     Dates: start: 202012

REACTIONS (4)
  - Vomiting [None]
  - Hypokinesia [None]
  - Blood glucose increased [None]
  - Malaise [None]
